FAERS Safety Report 22099844 (Version 2)
Quarter: 2023Q2

REPORT INFORMATION
  Report Type: Spontaneous
  Country: IN (occurrence: IN)
  Receive Date: 20230315
  Receipt Date: 20230405
  Transmission Date: 20230721
  Serious: Yes (Other)
  Sender: FDA-Public Use
  Company Number: IN-AMGEN-INDSP2023042335

PATIENT

DRUGS (1)
  1. NPLATE [Suspect]
     Active Substance: ROMIPLOSTIM
     Indication: Immune thrombocytopenia
     Dosage: UNK, QWK
     Route: 058

REACTIONS (6)
  - Anaemia [Unknown]
  - Dysuria [Unknown]
  - Pharyngitis [Unknown]
  - Liver function test abnormal [Unknown]
  - Drug specific antibody present [Unknown]
  - Musculoskeletal pain [Unknown]
